APPROVED DRUG PRODUCT: BETAMETHASONE VALERATE
Active Ingredient: BETAMETHASONE VALERATE
Strength: 0.12%
Dosage Form/Route: AEROSOL, FOAM;TOPICAL
Application: A207144 | Product #001
Applicant: NOVAST LABORATORIES LTD
Approved: May 24, 2017 | RLD: No | RS: No | Type: DISCN